FAERS Safety Report 4423282-9 (Version None)
Quarter: 2004Q3

REPORT INFORMATION
  Report Type: 
  Country: None (occurrence: None)
  Receive Date: 20040805
  Receipt Date: 20040727
  Transmission Date: 20050211
  Serious: Yes (Other)
  Sender: FDA-Public Use
  Company Number: 2004225953US

PATIENT
  Age: 76 Year
  Sex: Female

DRUGS (3)
  1. CELEBREX [Suspect]
     Indication: RHEUMATOID ARTHRITIS
     Dosage: ORAL
     Route: 048
     Dates: start: 20040101, end: 20040101
  2. SYNTHROID [Concomitant]
  3. HYDROCHLOROTHIAZIDE/TRIAMTERENE [Concomitant]

REACTIONS (6)
  - ANOREXIA [None]
  - CORONARY ARTERY OCCLUSION [None]
  - GASTROINTESTINAL PAIN [None]
  - HAEMOGLOBIN DECREASED [None]
  - LARGE INTESTINAL ULCER HAEMORRHAGE [None]
  - WEIGHT DECREASED [None]
